FAERS Safety Report 19172618 (Version 1)
Quarter: 2021Q2

REPORT INFORMATION
  Report Type: Spontaneous
  Country: US (occurrence: US)
  Receive Date: 20210422
  Receipt Date: 20210422
  Transmission Date: 20210717
  Serious: Yes (Hospitalization)
  Sender: FDA-Public Use
  Company Number: None

PATIENT
  Sex: Female

DRUGS (11)
  1. NITROGLYCERIN SUB [Concomitant]
  2. BENLYSTA [Suspect]
     Active Substance: BELIMUMAB
     Route: 058
  3. DULOXETINE. [Concomitant]
     Active Substance: DULOXETINE
  4. METOCLOPRAM [Concomitant]
     Active Substance: METOCLOPRAMIDE
  5. ASPIRIN. [Concomitant]
     Active Substance: ASPIRIN
  6. ISOSORB MONO [Concomitant]
     Active Substance: ISOSORBIDE MONONITRATE
  7. ATORVASTATIN [Concomitant]
     Active Substance: ATORVASTATIN
  8. RANOLAZINE. [Concomitant]
     Active Substance: RANOLAZINE
  9. PREDNISONE. [Concomitant]
     Active Substance: PREDNISONE
  10. REPATHA (RETAIL) [Concomitant]
  11. CLOPIDOGREL [Concomitant]
     Active Substance: CLOPIDOGREL BISULFATE

REACTIONS (1)
  - Cardiac disorder [None]
